FAERS Safety Report 4676769-8 (Version None)
Quarter: 2005Q2

REPORT INFORMATION
  Report Type: 
  Country: None (occurrence: None)
  Receive Date: 20050527
  Receipt Date: 20030605
  Transmission Date: 20051028
  Serious: Yes (Other)
  Sender: FDA-Public Use
  Company Number: US-MERCK-0306USA00775

PATIENT
  Age: 56 Year
  Sex: Female
  Weight: 62 kg

DRUGS (5)
  1. VIOXX [Suspect]
     Indication: TOE DEFORMITY
     Route: 048
     Dates: start: 20001221, end: 20010101
  2. VIOXX [Suspect]
     Route: 048
     Dates: start: 20030820
  3. PREMPRO (PREMARIN;CYCRIN 14/14) [Concomitant]
     Route: 065
  4. DYAZIDE [Concomitant]
     Route: 065
  5. ASPIRIN [Concomitant]
     Route: 065

REACTIONS (65)
  - ADVERSE EVENT [None]
  - ANGER [None]
  - ANGINA PECTORIS [None]
  - ANGIOPATHY [None]
  - ANHEDONIA [None]
  - ANXIETY [None]
  - APPENDICECTOMY [None]
  - APPENDIX DISORDER [None]
  - ARTHROPATHY [None]
  - BLOOD PRESSURE INADEQUATELY CONTROLLED [None]
  - BRAIN STEM ISCHAEMIA [None]
  - BUNION [None]
  - CAROTID ARTERY ATHEROMA [None]
  - CAROTID ARTERY STENOSIS [None]
  - CARPAL TUNNEL SYNDROME [None]
  - CEREBRAL ATHEROSCLEROSIS [None]
  - CEREBROVASCULAR ACCIDENT [None]
  - CEREBROVASCULAR DISORDER [None]
  - CHRONIC OBSTRUCTIVE PULMONARY DISEASE [None]
  - COMPLICATED MIGRAINE [None]
  - CONTUSION [None]
  - CONVULSION [None]
  - DEPRESSED MOOD [None]
  - DEPRESSION [None]
  - DIASTOLIC DYSFUNCTION [None]
  - DIZZINESS [None]
  - FALL [None]
  - FATIGUE [None]
  - FEELING OF DESPAIR [None]
  - GANGLION [None]
  - GASTROINTESTINAL DISORDER [None]
  - GASTROOESOPHAGEAL REFLUX DISEASE [None]
  - HYPERCHOLESTEROLAEMIA [None]
  - HYPERLIPIDAEMIA [None]
  - HYPERTENSION [None]
  - HYPOAESTHESIA [None]
  - LACUNAR INFARCTION [None]
  - MICROANGIOPATHY [None]
  - MIGRAINE [None]
  - MITRAL VALVE INCOMPETENCE [None]
  - MONARTHRITIS [None]
  - MOOD SWINGS [None]
  - NECK PAIN [None]
  - NERVE COMPRESSION [None]
  - NEUROPATHY PERIPHERAL [None]
  - PAIN IN EXTREMITY [None]
  - PERIARTHRITIS [None]
  - PERSONALITY CHANGE [None]
  - SINUS TARSI SYNDROME [None]
  - SKIN LESION [None]
  - SOMNOLENCE [None]
  - STRESS [None]
  - SYNCOPE [None]
  - THERAPY NON-RESPONDER [None]
  - TINEL'S SIGN [None]
  - TOE DEFORMITY [None]
  - TONSILLAR DISORDER [None]
  - TONSILLECTOMY [None]
  - TRANSIENT ISCHAEMIC ATTACK [None]
  - TRICUSPID VALVE INCOMPETENCE [None]
  - TRIGGER FINGER [None]
  - URGE INCONTINENCE [None]
  - VENTRICULAR HYPERTROPHY [None]
  - VERTIGO [None]
  - WRIST FRACTURE [None]
